FAERS Safety Report 6311591-8 (Version None)
Quarter: 2009Q3

REPORT INFORMATION
  Report Type: 
  Country: None (occurrence: None)
  Receive Date: 20090817
  Receipt Date: 20090811
  Transmission Date: 20100115
  Serious: Yes (Hospitalization)
  Sender: FDA-Public Use
  Company Number: A0774378A

PATIENT
  Age: 48 Year
  Sex: Male

DRUGS (2)
  1. AVANDIA [Suspect]
     Dosage: 4MG PER DAY
     Route: 065
     Dates: start: 20070621, end: 20071001
  2. AVANDARYL [Suspect]
     Dosage: 4MG TWICE PER DAY
     Dates: start: 20060619, end: 20070324

REACTIONS (5)
  - CARDIAC FAILURE [None]
  - MEMORY IMPAIRMENT [None]
  - MYOCARDIAL ISCHAEMIA [None]
  - NEURALGIA [None]
  - SEXUAL DYSFUNCTION [None]
